FAERS Safety Report 5519352-4 (Version None)
Quarter: 2007Q4

REPORT INFORMATION
  Report Type: 
  Country: None (occurrence: None)
  Receive Date: 20071114
  Receipt Date: 20071106
  Transmission Date: 20080405
  Serious: Yes (Hospitalization)
  Sender: FDA-Public Use
  Company Number: 062-C5013-07071000

PATIENT
  Age: 69 Year
  Sex: Male
  Weight: 77 kg

DRUGS (7)
  1. CC-5013 (LENALIDOMIDE) (CAPSULES) [Suspect]
     Indication: MULTIPLE MYELOMA
     Dosage: 25 MG, DAILY, ORAL; 15 MG, DAILY, ORAL
     Route: 048
     Dates: start: 20070427, end: 20070627
  2. CC-5013 (LENALIDOMIDE) (CAPSULES) [Suspect]
     Indication: MULTIPLE MYELOMA
     Dosage: 25 MG, DAILY, ORAL; 15 MG, DAILY, ORAL
     Route: 048
     Dates: start: 20070722, end: 20070727
  3. DEXAMETHASONE TAB [Suspect]
     Indication: MULTIPLE MYELOMA
     Dosage: 40 MG, DAILY ON DAYS 1-4, 9-12, 17-20, ORAL; 320 MG, PER COURSE, ORAL
     Route: 048
     Dates: start: 20070427, end: 20070625
  4. DEXAMETHASONE TAB [Suspect]
     Indication: MULTIPLE MYELOMA
     Dosage: 40 MG, DAILY ON DAYS 1-4, 9-12, 17-20, ORAL; 320 MG, PER COURSE, ORAL
     Route: 048
     Dates: start: 20070722, end: 20070725
  5. PHENPROCOUMON ( PHENPROCOUMON) [Concomitant]
  6. PIPERACILLIN [Concomitant]
  7. COMBACTAM (SULBACTAM SODIUM) [Concomitant]

REACTIONS (13)
  - ATRIAL FLUTTER [None]
  - BUNDLE BRANCH BLOCK [None]
  - CARDIOMEGALY [None]
  - DEEP VEIN THROMBOSIS [None]
  - EMBOLISM [None]
  - FISTULA [None]
  - HAEMOPTYSIS [None]
  - PATHOLOGICAL FRACTURE [None]
  - PLEURISY [None]
  - PULMONARY EMBOLISM [None]
  - RIB FRACTURE [None]
  - SYNCOPE [None]
  - TRICUSPID VALVE INCOMPETENCE [None]
